FAERS Safety Report 18926650 (Version 1)
Quarter: 2021Q1

REPORT INFORMATION
  Report Type: Other
  Country: FR (occurrence: FR)
  Receive Date: 20210223
  Receipt Date: 20210223
  Transmission Date: 20210420
  Serious: Yes (Other)
  Sender: FDA-Public Use
  Company Number: FR-CADILA HEALTHCARE LIMITED-FR-ZYDUS-062166

PATIENT

DRUGS (10)
  1. VIMPAT [Suspect]
     Active Substance: LACOSAMIDE
     Indication: PRODUCT ADMINISTRATION ERROR
     Dosage: 1 DOSAGE FORM, QD
     Route: 048
     Dates: start: 20201217, end: 20201217
  2. MACROGOL [Suspect]
     Active Substance: POLYETHYLENE GLYCOLS
     Indication: PRODUCT ADMINISTRATION ERROR
     Dosage: 1 DOSAGE FORM, QD
     Route: 048
     Dates: start: 20201217, end: 20201217
  3. ZYMAD [Suspect]
     Active Substance: CHOLECALCIFEROL
     Indication: PRODUCT ADMINISTRATION ERROR
     Dosage: 1 DOSAGE FORM, QD
     Route: 048
     Dates: start: 20201217, end: 20201217
  4. BISOCE [Suspect]
     Active Substance: BISOPROLOL
     Indication: PRODUCT ADMINISTRATION ERROR
     Dosage: 1 DOSAGE FORM, QD
     Route: 048
     Dates: start: 20201217, end: 20201217
  5. DOLIPRANE [Suspect]
     Active Substance: ACETAMINOPHEN
     Indication: PRODUCT ADMINISTRATION ERROR
     Dosage: 2 DOSAGE FORM, QD
     Route: 048
     Dates: start: 20201217, end: 20201217
  6. RAMIPRIL. [Suspect]
     Active Substance: RAMIPRIL
     Indication: PRODUCT ADMINISTRATION ERROR
     Dosage: 2.5 MILLIGRAM, QD
     Route: 048
     Dates: start: 20201217, end: 20201217
  7. FURADANTINE [Suspect]
     Active Substance: NITROFURANTOIN
     Indication: PRODUCT ADMINISTRATION ERROR
     Dosage: 2 DOSAGE FORM, QD
     Route: 048
     Dates: start: 20201217, end: 20201217
  8. DIFFU K [Suspect]
     Active Substance: POTASSIUM CHLORIDE
     Indication: PRODUCT ADMINISTRATION ERROR
     Dosage: 1 DOSAGE FORM, QD
     Route: 048
     Dates: start: 20201217, end: 20201217
  9. ACIDE FOLIQUE [Suspect]
     Active Substance: FOLIC ACID
     Indication: PRODUCT ADMINISTRATION ERROR
     Dosage: 5 MILLIGRAM, QD
     Route: 048
     Dates: start: 20201217, end: 20201217
  10. FUMAFER [Suspect]
     Active Substance: FERROUS FUMARATE
     Indication: PRODUCT ADMINISTRATION ERROR
     Dosage: 1 DOSAGE FORM, QD
     Route: 048
     Dates: start: 20201217, end: 20201217

REACTIONS (6)
  - Malaise [Recovered/Resolved]
  - Hypotension [Recovered/Resolved]
  - Product administration error [Unknown]
  - Wrong patient received product [Unknown]
  - Loss of consciousness [Recovered/Resolved]
  - Bradycardia [Recovered/Resolved]

NARRATIVE: CASE EVENT DATE: 20201217
